FAERS Safety Report 21916659 (Version 1)
Quarter: 2023Q1

REPORT INFORMATION
  Report Type: Report from Study
  Country: US (occurrence: US)
  Receive Date: 20230126
  Receipt Date: 20230126
  Transmission Date: 20230417
  Serious: Yes (Hospitalization)
  Sender: FDA-Public Use
  Company Number: US-TAKEDA-2023TUS009116

PATIENT
  Age: 72 Year
  Sex: Female

DRUGS (36)
  1. TEDUGLUTIDE [Suspect]
     Active Substance: TEDUGLUTIDE
     Indication: Short-bowel syndrome
     Dosage: 1.7 MILLIGRAM, QD
     Route: 042
     Dates: start: 20200224, end: 20200626
  2. TEDUGLUTIDE [Suspect]
     Active Substance: TEDUGLUTIDE
     Indication: Short-bowel syndrome
     Dosage: 1.7 MILLIGRAM, QD
     Route: 042
     Dates: start: 20200224, end: 20200626
  3. TEDUGLUTIDE [Suspect]
     Active Substance: TEDUGLUTIDE
     Indication: Short-bowel syndrome
     Dosage: 1.7 MILLIGRAM, QD
     Route: 042
     Dates: start: 20200224, end: 20200626
  4. TEDUGLUTIDE [Suspect]
     Active Substance: TEDUGLUTIDE
     Indication: Short-bowel syndrome
     Dosage: 1.7 MILLIGRAM, QD
     Route: 042
     Dates: start: 20200224, end: 20200626
  5. TEDUGLUTIDE [Suspect]
     Active Substance: TEDUGLUTIDE
     Dosage: 1.7 MILLIGRAM, 4/WEEK
     Route: 042
     Dates: start: 20200706, end: 20200727
  6. TEDUGLUTIDE [Suspect]
     Active Substance: TEDUGLUTIDE
     Dosage: 1.7 MILLIGRAM, 4/WEEK
     Route: 042
     Dates: start: 20200706, end: 20200727
  7. TEDUGLUTIDE [Suspect]
     Active Substance: TEDUGLUTIDE
     Dosage: 1.7 MILLIGRAM, 4/WEEK
     Route: 042
     Dates: start: 20200706, end: 20200727
  8. TEDUGLUTIDE [Suspect]
     Active Substance: TEDUGLUTIDE
     Dosage: 1.7 MILLIGRAM, 4/WEEK
     Route: 042
     Dates: start: 20200706, end: 20200727
  9. TEDUGLUTIDE [Suspect]
     Active Substance: TEDUGLUTIDE
     Dosage: 1.700 MILLIGRAM, QD
     Route: 042
     Dates: start: 20200727, end: 20201214
  10. TEDUGLUTIDE [Suspect]
     Active Substance: TEDUGLUTIDE
     Dosage: 1.700 MILLIGRAM, QD
     Route: 042
     Dates: start: 20200727, end: 20201214
  11. TEDUGLUTIDE [Suspect]
     Active Substance: TEDUGLUTIDE
     Dosage: 1.700 MILLIGRAM, QD
     Route: 042
     Dates: start: 20200727, end: 20201214
  12. TEDUGLUTIDE [Suspect]
     Active Substance: TEDUGLUTIDE
     Dosage: 1.700 MILLIGRAM, QD
     Route: 042
     Dates: start: 20200727, end: 20201214
  13. TEDUGLUTIDE [Suspect]
     Active Substance: TEDUGLUTIDE
     Dosage: 1.7 MILLIGRAM, 4/WEEK
     Route: 042
     Dates: start: 20201221, end: 20210412
  14. TEDUGLUTIDE [Suspect]
     Active Substance: TEDUGLUTIDE
     Dosage: 1.7 MILLIGRAM, 4/WEEK
     Route: 042
     Dates: start: 20201221, end: 20210412
  15. TEDUGLUTIDE [Suspect]
     Active Substance: TEDUGLUTIDE
     Dosage: 1.7 MILLIGRAM, 4/WEEK
     Route: 042
     Dates: start: 20201221, end: 20210412
  16. TEDUGLUTIDE [Suspect]
     Active Substance: TEDUGLUTIDE
     Dosage: 1.7 MILLIGRAM, 4/WEEK
     Route: 042
     Dates: start: 20201221, end: 20210412
  17. TEDUGLUTIDE [Suspect]
     Active Substance: TEDUGLUTIDE
     Dosage: 1.7 MILLIGRAM, 4/WEEK
     Route: 042
     Dates: start: 20210427, end: 20210505
  18. TEDUGLUTIDE [Suspect]
     Active Substance: TEDUGLUTIDE
     Dosage: 1.7 MILLIGRAM, 4/WEEK
     Route: 042
     Dates: start: 20210427, end: 20210505
  19. TEDUGLUTIDE [Suspect]
     Active Substance: TEDUGLUTIDE
     Dosage: 1.7 MILLIGRAM, 4/WEEK
     Route: 042
     Dates: start: 20210427, end: 20210505
  20. TEDUGLUTIDE [Suspect]
     Active Substance: TEDUGLUTIDE
     Dosage: 1.7 MILLIGRAM, 4/WEEK
     Route: 042
     Dates: start: 20210427, end: 20210505
  21. TEDUGLUTIDE [Suspect]
     Active Substance: TEDUGLUTIDE
     Dosage: 1.7 MILLIGRAM, QD
     Route: 042
     Dates: start: 20210505, end: 20220922
  22. TEDUGLUTIDE [Suspect]
     Active Substance: TEDUGLUTIDE
     Dosage: 1.7 MILLIGRAM, QD
     Route: 042
     Dates: start: 20210505, end: 20220922
  23. TEDUGLUTIDE [Suspect]
     Active Substance: TEDUGLUTIDE
     Dosage: 1.7 MILLIGRAM, QD
     Route: 042
     Dates: start: 20210505, end: 20220922
  24. TEDUGLUTIDE [Suspect]
     Active Substance: TEDUGLUTIDE
     Dosage: 1.7 MILLIGRAM, QD
     Route: 042
     Dates: start: 20210505, end: 20220922
  25. TEDUGLUTIDE [Suspect]
     Active Substance: TEDUGLUTIDE
     Dosage: 1.7 MILLIGRAM, 4/WEEK
     Route: 042
     Dates: start: 20220922, end: 20221005
  26. TEDUGLUTIDE [Suspect]
     Active Substance: TEDUGLUTIDE
     Dosage: 1.7 MILLIGRAM, 4/WEEK
     Route: 042
     Dates: start: 20220922, end: 20221005
  27. TEDUGLUTIDE [Suspect]
     Active Substance: TEDUGLUTIDE
     Dosage: 1.7 MILLIGRAM, 4/WEEK
     Route: 042
     Dates: start: 20220922, end: 20221005
  28. TEDUGLUTIDE [Suspect]
     Active Substance: TEDUGLUTIDE
     Dosage: 1.7 MILLIGRAM, 4/WEEK
     Route: 042
     Dates: start: 20220922, end: 20221005
  29. TEDUGLUTIDE [Suspect]
     Active Substance: TEDUGLUTIDE
     Dosage: 1.7 MILLIGRAM, QD
     Route: 042
     Dates: start: 20221005
  30. TEDUGLUTIDE [Suspect]
     Active Substance: TEDUGLUTIDE
     Dosage: 1.7 MILLIGRAM, QD
     Route: 042
     Dates: start: 20221005
  31. TEDUGLUTIDE [Suspect]
     Active Substance: TEDUGLUTIDE
     Dosage: 1.7 MILLIGRAM, QD
     Route: 042
     Dates: start: 20221005
  32. TEDUGLUTIDE [Suspect]
     Active Substance: TEDUGLUTIDE
     Dosage: 1.7 MILLIGRAM, QD
     Route: 042
     Dates: start: 20221005
  33. SIVEXTRO [Concomitant]
     Active Substance: TEDIZOLID PHOSPHATE
     Indication: Infection
     Dosage: 200 MILLIGRAM
     Route: 048
     Dates: start: 202209
  34. VENOFER [Concomitant]
     Active Substance: IRON SUCROSE
     Indication: Anaemia
     Dosage: 200 MILLIGRAM, 1/WEEK
     Route: 042
     Dates: start: 20220825, end: 20220912
  35. RIFAMPIN [Concomitant]
     Active Substance: RIFAMPIN
     Indication: Arthritis infective
     Dosage: UNK
     Route: 065
     Dates: start: 20220712, end: 202207
  36. DAPTOMYCIN [Concomitant]
     Active Substance: DAPTOMYCIN
     Indication: Arthritis infective
     Dosage: UNK
     Route: 065
     Dates: start: 20220712, end: 202207

REACTIONS (1)
  - Bursitis [Recovered/Resolved]

NARRATIVE: CASE EVENT DATE: 20221125
